FAERS Safety Report 4396323-5 (Version None)
Quarter: 2004Q2

REPORT INFORMATION
  Report Type: 
  Country: None (occurrence: None)
  Receive Date: 20040621
  Receipt Date: 20031121
  Transmission Date: 20050107
  Serious: Yes (Death)
  Sender: FDA-Public Use
  Company Number: USA-2003-0010944

PATIENT
  Age: 37 Year
  Sex: Female
  Weight: 86.2 kg

DRUGS (7)
  1. OXYCODONE HCL [Suspect]
  2. MEPROBAMATE [Suspect]
  3. CARISOPRODOL [Suspect]
  4. TEMAZEPAM [Suspect]
  5. DIAZEPAM [Suspect]
  6. OXAZEPAM [Suspect]
  7. CAFFEINE (CAFFEINE) [Suspect]

REACTIONS (2)
  - ACCIDENTAL OVERDOSE [None]
  - MULTIPLE DRUG OVERDOSE [None]
